FAERS Safety Report 23718747 (Version 1)
Quarter: 2024Q2

REPORT INFORMATION
  Report Type: Spontaneous
  Country: IT (occurrence: IT)
  Receive Date: 20240408
  Receipt Date: 20240408
  Transmission Date: 20240715
  Serious: No
  Sender: FDA-Public Use
  Company Number: IT-ROCHE-3152349

PATIENT
  Age: 77 Year
  Sex: Female
  Weight: 77 kg

DRUGS (51)
  1. CYCLOPHOSPHAMIDE [Suspect]
     Active Substance: CYCLOPHOSPHAMIDE
     Dosage: 750MG/M2, ON31-AUG-2022 3:30 AM SHE RECEIVED MOST RECENT DOSE 750 MG/M2 OF STUDY DRUG CYCLOPHOSPHAMI
     Route: 042
     Dates: start: 20220629
  2. CYCLOPHOSPHAMIDE [Suspect]
     Active Substance: CYCLOPHOSPHAMIDE
     Indication: Diffuse large B-cell lymphoma
     Dosage: UNK
     Route: 065
  3. DOXORUBICIN [Suspect]
     Active Substance: DOXORUBICIN
     Indication: Diffuse large B-cell lymphoma
     Dosage: 50 MG/M2, Q3W,ON 31-AUG-2022 4:35 PM, SHE RECEIVED MOST RECENT DOSE 50 MG/M2 OF STUDY DRUG DOXORUBIC
     Route: 042
     Dates: start: 20220629
  4. GLOFITAMAB [Suspect]
     Active Substance: GLOFITAMAB
     Indication: Diffuse large B-cell lymphoma
     Dosage: 2.5 MG, Q3W, DOSE OF STUDY DRUG FIRST ADMINISTERED 2.5 MG DOSE LAST STUDY DRUG ADMIN PRIOR AE 2.5 MG
     Route: 042
     Dates: start: 20220727
  5. METHYLPREDNISOLONE [Suspect]
     Active Substance: METHYLPREDNISOLONE
     Indication: Diffuse large B-cell lymphoma
     Dosage: ON 31-AUG-2022 10:40 AM SHE RECEIVED MOST RECENT DOSE 80 MG OF STUDY DRUG METHYPREDNISOLONE PRIOR TO
     Route: 048
     Dates: start: 20220629
  6. POLATUZUMAB VEDOTIN [Suspect]
     Active Substance: POLATUZUMAB VEDOTIN
     Indication: Diffuse large B-cell lymphoma
     Dosage: 160 MG, ON 20/JUL/2022, SHE RECEIVED MOST RECENT DOSE 138.6 MG OF STUDY DRUG POLATUZUMAB VEDOTIN PRI
     Route: 042
     Dates: start: 20220629
  7. PREDNISONE [Suspect]
     Active Substance: PREDNISONE
     Indication: Diffuse large B-cell lymphoma
     Dosage: 100MG, ON 04/SEP/2022, SHE RECEIVED MOST RECENT DOSE 100 MG OF STUDY DRUG PREDNISONE PRIOR TO AE. 04
     Route: 048
     Dates: start: 20220630
  8. RITUXIMAB [Suspect]
     Active Substance: RITUXIMAB
     Indication: Diffuse large B-cell lymphoma
     Dosage: 375 MG/M2, Q3W, ON 20/JUL/2022, SHE RECEIVED MOST RECENT DOSE 375 MGM2 OF STUDY DRUG RITUXIMAB PRIOR
     Route: 042
     Dates: start: 20220629
  9. VINCRISTINE SULFATE [Suspect]
     Active Substance: VINCRISTINE SULFATE
     Indication: Diffuse large B-cell lymphoma
     Dosage: UNK
     Route: 042
  10. ACYCLOVIR [Concomitant]
     Active Substance: ACYCLOVIR
     Indication: Product used for unknown indication
     Dosage: 400MG
     Route: 065
     Dates: start: 20220706
  11. CEFIXIME [Concomitant]
     Active Substance: CEFIXIME
     Indication: Product used for unknown indication
     Dosage: 400MG
     Route: 065
     Dates: start: 20220705, end: 20220709
  12. CEFTRIAXONE [Concomitant]
     Active Substance: CEFTRIAXONE\CEFTRIAXONE SODIUM
     Indication: Product used for unknown indication
     Dosage: 2 G
     Route: 065
     Dates: start: 20220817, end: 20220817
  13. ENOXAPARIN SODIUM [Concomitant]
     Active Substance: ENOXAPARIN SODIUM
     Indication: Product used for unknown indication
     Dosage: 6000 DF, 6000 IU
     Route: 065
     Dates: start: 20220701, end: 20220704
  14. ENOXAPARIN SODIUM [Concomitant]
     Active Substance: ENOXAPARIN SODIUM
     Dosage: 6000 DF, 6000 IU
     Route: 065
     Dates: start: 20220719, end: 20220721
  15. CHLORPHENIRAMINE MALEATE [Concomitant]
     Active Substance: CHLORPHENIRAMINE MALEATE
     Indication: Product used for unknown indication
     Dosage: 10 MG
     Route: 065
     Dates: start: 20220629, end: 20220629
  16. CHLORPHENIRAMINE MALEATE [Concomitant]
     Active Substance: CHLORPHENIRAMINE MALEATE
     Dosage: 5 MG
     Route: 065
     Dates: start: 20220720, end: 20220720
  17. CHLORPHENIRAMINE MALEATE [Concomitant]
     Active Substance: CHLORPHENIRAMINE MALEATE
     Dosage: 5 MG
     Route: 065
     Dates: start: 20220810, end: 20220810
  18. CHLORPHENIRAMINE MALEATE [Concomitant]
     Active Substance: CHLORPHENIRAMINE MALEATE
     Dosage: 5 MG
     Route: 065
     Dates: start: 20220817, end: 20220817
  19. CHLORPHENIRAMINE MALEATE [Concomitant]
     Active Substance: CHLORPHENIRAMINE MALEATE
     Dosage: 5 MG
     Route: 065
     Dates: start: 20220831, end: 20220831
  20. CHLORPHENIRAMINE MALEATE [Concomitant]
     Active Substance: CHLORPHENIRAMINE MALEATE
     Dosage: UNK
     Route: 065
     Dates: start: 20220727, end: 20220727
  21. DEXAMETHASONE [Concomitant]
     Active Substance: DEXAMETHASONE
     Indication: Product used for unknown indication
     Dosage: 20MG, STRENGTH: 4 MG/ML
     Route: 065
     Dates: start: 20220727, end: 20220727
  22. DEXAMETHASONE [Concomitant]
     Active Substance: DEXAMETHASONE
     Dosage: 5MG
     Route: 065
     Dates: start: 20220817, end: 20220817
  23. ENOXAPARIN SODIUM [Concomitant]
     Active Substance: ENOXAPARIN SODIUM
     Indication: Product used for unknown indication
     Dosage: 4000 DF, 4000 IU
     Route: 065
     Dates: start: 20220705, end: 20220718
  24. ENOXAPARIN SODIUM [Concomitant]
     Active Substance: ENOXAPARIN SODIUM
     Dosage: 4000 DF, 4000 IU
     Route: 065
     Dates: start: 20220722, end: 20220819
  25. FASTURTEC [Concomitant]
     Active Substance: RASBURICASE
     Dosage: 7.5MG
     Route: 065
     Dates: start: 20220721, end: 20220721
  26. FASTURTEC [Concomitant]
     Active Substance: RASBURICASE
     Indication: Product used for unknown indication
     Dosage: 7.5MG, STRENGTH: 1.5 MG/ML
     Route: 065
     Dates: start: 20220629, end: 20220704
  27. FONDAPARINUX [Concomitant]
     Active Substance: FONDAPARINUX
     Indication: Product used for unknown indication
     Dosage: 2.5 MG
     Route: 065
     Dates: start: 20220826, end: 20220909
  28. LEVOFLOXACIN [Concomitant]
     Active Substance: LEVOFLOXACIN
     Indication: Neutropenia
     Dosage: UNK
     Route: 065
     Dates: start: 20220730, end: 20220802
  29. MYCOSTATIN [Concomitant]
     Active Substance: NYSTATIN
     Indication: Product used for unknown indication
     Dosage: UNK
     Route: 065
     Dates: start: 20220705
  30. PALONOSETRON [Concomitant]
     Active Substance: PALONOSETRON
     Indication: Product used for unknown indication
     Dosage: 0.5MG
     Route: 065
     Dates: start: 20220629, end: 20220629
  31. PALONOSETRON [Concomitant]
     Active Substance: PALONOSETRON
     Dosage: 0.5MG
     Route: 065
     Dates: start: 20220720, end: 20220720
  32. PALONOSETRON [Concomitant]
     Active Substance: PALONOSETRON
     Dosage: UNK
     Route: 065
     Dates: start: 20220810, end: 20220810
  33. PALONOSETRON [Concomitant]
     Active Substance: PALONOSETRON
     Dosage: UNK
     Route: 065
     Dates: start: 20220831, end: 20220831
  34. PANTOPRAZOLE [Concomitant]
     Active Substance: PANTOPRAZOLE
     Dosage: 40MG
     Route: 065
     Dates: start: 20220629, end: 20220629
  35. PANTOPRAZOLE [Concomitant]
     Active Substance: PANTOPRAZOLE
     Dosage: 40MG
     Route: 065
     Dates: start: 20220826
  36. PANTOPRAZOLE [Concomitant]
     Active Substance: PANTOPRAZOLE
     Dosage: 40 MG
     Route: 065
     Dates: start: 20220817, end: 20220825
  37. PANTOPRAZOLE [Concomitant]
     Active Substance: PANTOPRAZOLE
     Dosage: 40 MG
     Route: 065
     Dates: start: 20220826, end: 20220826
  38. PANTOPRAZOLE [Concomitant]
     Active Substance: PANTOPRAZOLE
     Indication: Prophylaxis
     Dosage: 40MG
     Route: 065
     Dates: start: 20220623, end: 20220705
  39. PANTOPRAZOLE [Concomitant]
     Active Substance: PANTOPRAZOLE
     Dosage: 40MG
     Route: 065
     Dates: start: 20220705, end: 20220816
  40. PANTOPRAZOLE [Concomitant]
     Active Substance: PANTOPRAZOLE
     Dosage: 40MG
     Route: 065
     Dates: start: 20220720, end: 20220720
  41. PANTOPRAZOLE [Concomitant]
     Active Substance: PANTOPRAZOLE
     Dosage: 40MG
     Route: 065
     Dates: start: 20220727, end: 20220727
  42. PANTOPRAZOLE [Concomitant]
     Active Substance: PANTOPRAZOLE
     Dosage: 40MG
     Route: 065
     Dates: start: 20220810, end: 20220810
  43. PANTOPRAZOLE [Concomitant]
     Active Substance: PANTOPRAZOLE
     Dosage: 40MG
     Route: 065
     Dates: start: 20220817, end: 20220817
  44. PANTOPRAZOLE [Concomitant]
     Active Substance: PANTOPRAZOLE
     Dosage: 40MG
     Route: 065
     Dates: start: 20220831, end: 20220831
  45. ACETAMINOPHEN [Concomitant]
     Active Substance: ACETAMINOPHEN
     Indication: Product used for unknown indication
     Dosage: 1000 MG
     Route: 065
     Dates: start: 20220629, end: 20220629
  46. ACETAMINOPHEN [Concomitant]
     Active Substance: ACETAMINOPHEN
     Dosage: 1000 MG
     Route: 065
     Dates: start: 20220720, end: 20220720
  47. ACETAMINOPHEN [Concomitant]
     Active Substance: ACETAMINOPHEN
     Dosage: 1000 MG
     Route: 065
     Dates: start: 20220817, end: 20220817
  48. ACETAMINOPHEN [Concomitant]
     Active Substance: ACETAMINOPHEN
     Dosage: 1000 MG
     Route: 065
     Dates: start: 20220831, end: 20220831
  49. TARGOSID [Concomitant]
     Active Substance: TEICOPLANIN
     Indication: Pyrexia
     Dosage: UNK
     Route: 065
     Dates: start: 20220910, end: 20220912
  50. PIPERACILLIN SODIUM\TAZOBACTAM SODIUM [Concomitant]
     Active Substance: PIPERACILLIN SODIUM\TAZOBACTAM SODIUM
     Indication: Product used for unknown indication
     Dosage: UNK
     Route: 065
     Dates: start: 20220912, end: 20220918
  51. PIPERACILLIN SODIUM\TAZOBACTAM SODIUM [Concomitant]
     Active Substance: PIPERACILLIN SODIUM\TAZOBACTAM SODIUM
     Dosage: UNK
     Route: 065
     Dates: start: 20220907, end: 20220909

REACTIONS (3)
  - Neutropenia [Recovered/Resolved]
  - Neutropenia [Recovered/Resolved]
  - Neutropenia [Recovered/Resolved]

NARRATIVE: CASE EVENT DATE: 20220729
